FAERS Safety Report 9408280 (Version 1)
Quarter: 2013Q3

REPORT INFORMATION
  Report Type: Spontaneous
  Country: IT (occurrence: None)
  Receive Date: 20130716
  Receipt Date: 20130716
  Transmission Date: 20140515
  Serious: Yes (Hospitalization)
  Sender: FDA-Public Use
  Company Number: GER/ITL/13/0031063

PATIENT
  Age: 91 Year
  Sex: Male

DRUGS (3)
  1. RAMIPRIL [Suspect]
     Dosage: 1 IN 1 D
  2. LASIX [Suspect]
     Dosage: 1 IN 1 D
     Route: 048
  3. ALDACTONE (SPIRONOLACTONE) [Suspect]
     Dosage: 1 IN 1 D
     Route: 048

REACTIONS (2)
  - Renal failure acute [None]
  - Medication error [None]
